FAERS Safety Report 8161022-0 (Version None)
Quarter: 2012Q1

REPORT INFORMATION
  Report Type: 
  Country: None (occurrence: None)
  Receive Date: 20120224
  Receipt Date: 20120214
  Transmission Date: 20120608
  Serious: Yes (Hospitalization)
  Sender: FDA-Public Use
  Company Number: US-BIOGENIDEC-2012BI002625

PATIENT
  Age: 56 Year
  Sex: Female

DRUGS (18)
  1. ALPRAZOLAM [Concomitant]
  2. NOVOLOG [Concomitant]
     Indication: DIABETES MELLITUS
  3. CYMBALTA [Concomitant]
  4. AMLODIPINE [Concomitant]
  5. PHENAZOPYRIDINE HCL TAB [Concomitant]
  6. TYSABRI [Suspect]
     Indication: RELAPSING-REMITTING MULTIPLE SCLEROSIS
     Route: 042
     Dates: start: 20091214
  7. ACIPHEX [Concomitant]
  8. DERMASARRA [Concomitant]
  9. LABETALOL HCL [Concomitant]
  10. LANTUS [Concomitant]
     Indication: DIABETES MELLITUS
  11. VALTURNA [Concomitant]
  12. LEXAPRO [Concomitant]
  13. CLONIDINE HCL [Concomitant]
  14. HYDROCODONE BITARTRATE AND ACETAMINOPHEN [Concomitant]
  15. COREGARD [Concomitant]
  16. CIPROFLOXACIN [Concomitant]
  17. SULFAMETHOXAZOLE [Concomitant]
  18. OXYBUTYNIN [Concomitant]

REACTIONS (3)
  - TREATMENT FAILURE [None]
  - HYPERTENSIVE CRISIS [None]
  - EMBOLIC STROKE [None]
